FAERS Safety Report 17814702 (Version 1)
Quarter: 2020Q3

REPORT INFORMATION
  Report Type: Other
  Country: DE (occurrence: DE)
  Receive Date: 20200522
  Receipt Date: 20200522
  Transmission Date: 20201105
  Serious: Yes (Other)
  Sender: FDA-Public Use
  Company Number: DE-CELLTRION INC.-2020DE022545

PATIENT

DRUGS (5)
  1. CHOP [Suspect]
     Active Substance: CYCLOPHOSPHAMIDE\DOXORUBICIN\PREDNISONE\VINCRISTINE
     Indication: DIFFUSE LARGE B-CELL LYMPHOMA
     Dosage: UNK
     Route: 065
     Dates: start: 201611, end: 201702
  2. POLATUZUMAB VEDOTIN. [Suspect]
     Active Substance: POLATUZUMAB VEDOTIN
     Indication: DIFFUSE LARGE B-CELL LYMPHOMA
     Dosage: 165 MG
     Route: 042
     Dates: start: 201912
  3. RITUXIMAB (UNKNOWN) [Suspect]
     Active Substance: RITUXIMAB
     Dosage: 787 MG
     Route: 041
     Dates: start: 201804, end: 201810
  4. BENDAMUSTINE [Suspect]
     Active Substance: BENDAMUSTINE
     Indication: DIFFUSE LARGE B-CELL LYMPHOMA
     Dosage: UNK
     Route: 065
     Dates: start: 201804, end: 201810
  5. RITUXIMAB (UNKNOWN) [Suspect]
     Active Substance: RITUXIMAB
     Indication: DIFFUSE LARGE B-CELL LYMPHOMA
     Dosage: UNK
     Route: 041
     Dates: start: 201611, end: 201702

REACTIONS (9)
  - Atrial fibrillation [Unknown]
  - Vomiting [Unknown]
  - Blood creatinine increased [Unknown]
  - Anxiety [Unknown]
  - Cardiac failure [Unknown]
  - Dehydration [Unknown]
  - Circulatory collapse [Unknown]
  - Activated partial thromboplastin time prolonged [Unknown]
  - Underdose [Unknown]

NARRATIVE: CASE EVENT DATE: 201904
